FAERS Safety Report 6595323-4 (Version None)
Quarter: 2010Q1

REPORT INFORMATION
  Report Type: 
  Country: None (occurrence: None)
  Receive Date: 20100219
  Receipt Date: 20100219
  Transmission Date: 20100710
  Serious: Yes (Other)
  Sender: FDA-Public Use
  Company Number: None

PATIENT
  Age: 43 Year
  Sex: Male

DRUGS (15)
  1. VALPROIC ACID [Suspect]
     Indication: CONVULSION
     Dosage: 500 MG Q8H OTHER
     Route: 050
     Dates: start: 20090927, end: 20091001
  2. ALBUTEROL [Concomitant]
  3. ASCORBIC ACID [Concomitant]
  4. ESOMEPRAZOLE [Concomitant]
  5. FOLIC ACID [Concomitant]
  6. INSULIN [Concomitant]
  7. IPRATROPIUM [Concomitant]
  8. LEVETIRACETAM [Concomitant]
  9. LEVOFLOXACIN [Concomitant]
  10. MERROPENEM [Concomitant]
  11. METOCLOPRAMIDE HYDROCHLORIDE [Concomitant]
  12. SOLU-MEDROL [Concomitant]
  13. VANCOMYCIN [Concomitant]
  14. ACETAMINOPHEN [Concomitant]
  15. LORAZEPAM [Concomitant]

REACTIONS (2)
  - RHABDOMYOLYSIS [None]
  - THROMBOCYTOPENIA [None]
